FAERS Safety Report 8531856-9 (Version None)
Quarter: 2012Q3

REPORT INFORMATION
  Report Type: 
  Country: None (occurrence: None)
  Receive Date: 20120723
  Receipt Date: 20120711
  Transmission Date: 20120928
  Serious: Yes (Hospitalization, Other)
  Sender: FDA-Public Use
  Company Number: US-009507513-1202USA03892

PATIENT

DRUGS (8)
  1. NORVASC [Concomitant]
     Indication: HYPERTENSION
     Dosage: 2.5 MG, QD
  2. FOSAMAX [Suspect]
     Indication: OSTEOPOROSIS POSTMENOPAUSAL
     Dosage: 70 MG, UNK
     Route: 048
     Dates: start: 20030724, end: 20050801
  3. FOSAMAX PLUS D [Suspect]
     Indication: OSTEOPOROSIS POSTMENOPAUSAL
     Dosage: 70 MG, UNK
     Route: 048
     Dates: start: 20051101, end: 20080801
  4. FOSAMAX [Suspect]
     Dosage: 70 MG, UNK
     Route: 048
     Dates: start: 20080801, end: 20111103
  5. NITRODERM [Concomitant]
  6. FOSAMAX [Suspect]
     Dosage: 70 MG, UNK
     Route: 048
     Dates: start: 20080801, end: 20110501
  7. VITAMINS (UNSPECIFIED) [Concomitant]
     Dosage: UNK
     Dates: start: 20020101
  8. LIPITOR [Concomitant]
     Indication: HYPERCHOLESTEROLAEMIA
     Dosage: 10 MG, QM
     Dates: start: 20010901

REACTIONS (20)
  - MYOCARDIAL INFARCTION [None]
  - LOW TURNOVER OSTEOPATHY [None]
  - JOINT CREPITATION [None]
  - PERIARTHRITIS [None]
  - MUSCULOSKELETAL DISCOMFORT [None]
  - ANAEMIA [None]
  - FEMUR FRACTURE [None]
  - SYNOVITIS [None]
  - HAEMOGLOBIN DECREASED [None]
  - INCISIONAL DRAINAGE [None]
  - ARTHRALGIA [None]
  - FLATULENCE [None]
  - BLOOD CALCIUM DECREASED [None]
  - CONSTIPATION [None]
  - GAIT DISTURBANCE [None]
  - LIMB DEFORMITY [None]
  - HYPOAESTHESIA [None]
  - OSTEOARTHRITIS [None]
  - DEEP VEIN THROMBOSIS [None]
  - ARTHRITIS [None]
